FAERS Safety Report 19332845 (Version 1)
Quarter: 2021Q2

REPORT INFORMATION
  Report Type: Spontaneous
  Country: US (occurrence: US)
  Receive Date: 20210528
  Receipt Date: 20210528
  Transmission Date: 20210717
  Serious: Yes (Other)
  Sender: FDA-Public Use
  Company Number: US-PURDUE-USA-2020-0226356

PATIENT
  Sex: Male

DRUGS (1)
  1. OXYCONTIN [Suspect]
     Active Substance: OXYCODONE HYDROCHLORIDE
     Indication: PRODUCT USED FOR UNKNOWN INDICATION
     Dosage: UNKNOWN
     Route: 048
     Dates: start: 199811, end: 200208

REACTIONS (7)
  - Drug dependence [Unknown]
  - Developmental delay [Unknown]
  - Illness [Unknown]
  - Quality of life decreased [Unknown]
  - Personality change [Unknown]
  - Learning disability [Unknown]
  - Withdrawal syndrome [Unknown]
